FAERS Safety Report 8909173 (Version 4)
Quarter: 2013Q1

REPORT INFORMATION
  Report Type: Spontaneous
  Country: BR (occurrence: None)
  Receive Date: 20121107
  Receipt Date: 20130204
  Transmission Date: 20140127
  Serious: Yes (Other)
  Sender: FDA-Public Use
  Company Number: MPS1-1000812

PATIENT
  Age: 7 Year
  Sex: Male

DRUGS (1)
  1. ALDURAZYME [Suspect]
     Indication: MUCOPOLYSACCHARIDOSIS I
     Dosage: 1.16 MG/KG, Q2W, INTRAVENOUS
     Route: 042
     Dates: start: 20100526

REACTIONS (3)
  - Carpal tunnel syndrome [None]
  - Mucopolysaccharidosis I [None]
  - Disease progression [None]
